FAERS Safety Report 9466873 (Version 3)
Quarter: 2013Q3

REPORT INFORMATION
  Report Type: Spontaneous
  Country: DE (occurrence: DE)
  Receive Date: 20130820
  Receipt Date: 20130918
  Transmission Date: 20140515
  Serious: Yes (Hospitalization)
  Sender: FDA-Public Use
  Company Number: DE-ROCHE-1263843

PATIENT
  Sex: Female

DRUGS (15)
  1. RITUXIMAB [Suspect]
     Indication: B-CELL LYMPHOMA
     Route: 042
     Dates: start: 20130319
  2. CYCLOPHOSPHAMIDE [Suspect]
     Indication: B-CELL LYMPHOMA
     Dosage: 28/JUN/2013, LAST DOSE PRIRO TO ONSET OF SAE
     Route: 042
     Dates: start: 20130410, end: 20130628
  3. DOXORUBICINE [Suspect]
     Indication: B-CELL LYMPHOMA
     Dosage: 28/JUN/2013, LAST DOSE PRIRO TO ONSET OF SAE
     Route: 042
     Dates: start: 20130410, end: 20130628
  4. VINCRISTINE [Suspect]
     Indication: B-CELL LYMPHOMA
     Route: 042
     Dates: start: 20130410, end: 20130612
  5. PREDNISONE [Suspect]
     Indication: B-CELL LYMPHOMA
     Dosage: 28/JUN/2013, LAST DOSE PRIRO TO ONSET OF SAE
     Route: 065
     Dates: start: 20130409, end: 20130702
  6. NEULASTA [Suspect]
     Indication: B-CELL LYMPHOMA
     Route: 058
     Dates: start: 20130412, end: 20130630
  7. LEUCOVORIN [Concomitant]
     Indication: B-CELL LYMPHOMA
     Route: 065
     Dates: start: 20130322
  8. METHOTREXATE [Concomitant]
     Route: 065
     Dates: start: 20130321, end: 20130321
  9. GRANISETRON [Concomitant]
     Route: 065
     Dates: start: 20130410, end: 20130628
  10. POTASSIUM SODIUM HYDROGEN CITRATE [Concomitant]
     Route: 065
     Dates: start: 20130410, end: 20130628
  11. MESNA [Concomitant]
     Route: 065
     Dates: start: 20130410, end: 20130628
  12. TRIMETOPRIM-SULFA [Concomitant]
     Route: 065
     Dates: start: 20130413
  13. ACICLOVIR [Concomitant]
     Route: 065
     Dates: start: 20130410
  14. LEVOFLOXACIN [Concomitant]
     Route: 065
     Dates: start: 20130414
  15. RAMIPRIL [Concomitant]

REACTIONS (6)
  - Pulmonary embolism [Recovered/Resolved]
  - Mitral valve incompetence [Unknown]
  - Tricuspid valve incompetence [Unknown]
  - Pulmonary arterial pressure increased [Unknown]
  - Left ventricular failure [Unknown]
  - Right ventricular failure [Unknown]
